FAERS Safety Report 8080051-9 (Version None)
Quarter: 2012Q1

REPORT INFORMATION
  Report Type: 
  Country: None (occurrence: None)
  Receive Date: 20120128
  Receipt Date: 20110810
  Transmission Date: 20120608
  Serious: No
  Sender: FDA-Public Use
  Company Number: US-ABBOTT-11P-163-0845947-00

PATIENT
  Sex: Male
  Weight: 83.99 kg

DRUGS (5)
  1. ASCORBIC ACID [Concomitant]
     Indication: VITAMIN SUPPLEMENTATION
  2. HUMIRA [Suspect]
     Indication: COLITIS ULCERATIVE
     Dates: start: 20110401
  3. ZANTAC [Concomitant]
     Indication: GASTROOESOPHAGEAL REFLUX DISEASE
  4. XANAX [Concomitant]
     Indication: ANXIETY
  5. ACIDOPHILOUS [Concomitant]
     Indication: CROHN'S DISEASE

REACTIONS (2)
  - OVERDOSE [None]
  - HEADACHE [None]
